FAERS Safety Report 6556810-8 (Version None)
Quarter: 2010Q1

REPORT INFORMATION
  Report Type: 
  Country: None (occurrence: None)
  Receive Date: 20100128
  Receipt Date: 20100118
  Transmission Date: 20100710
  Serious: Yes (Hospitalization)
  Sender: FDA-Public Use
  Company Number: PHHY2010ES03888

PATIENT
  Age: 83 Year
  Sex: Female

DRUGS (5)
  1. ANAFRANIL [Suspect]
     Indication: DEPRESSION
     Dosage: 25 MG DAILY
     Route: 048
  2. ESIDRIX [Suspect]
     Indication: HYPERTENSION
     Dosage: 25 MG DAILY
     Route: 048
  3. SERECOR [Concomitant]
  4. DIGOXIN [Concomitant]
  5. TRIATEC [Concomitant]

REACTIONS (4)
  - ASTHENIA [None]
  - EATING DISORDER [None]
  - HYPOKINESIA [None]
  - HYPONATRAEMIA [None]
